FAERS Safety Report 5634944-X (Version None)
Quarter: 2008Q1

REPORT INFORMATION
  Report Type: 
  Country: None (occurrence: None)
  Receive Date: 20080221
  Receipt Date: 20080221
  Transmission Date: 20080703
  Serious: Yes (Death, Hospitalization)
  Sender: FDA-Public Use
  Company Number: None

PATIENT
  Sex: Female
  Weight: 57 kg

DRUGS (10)
  1. XELODA [Suspect]
     Indication: BREAST CANCER METASTATIC
     Dosage: 1500 MG  B.I.D.  PO
     Route: 048
     Dates: start: 20071015, end: 20071117
  2. XELODA [Suspect]
     Indication: METASTASES TO LIVER
     Dosage: 1500 MG  B.I.D.  PO
     Route: 048
     Dates: start: 20071015, end: 20071117
  3. HYDROCHLOROTHIAZIDE [Suspect]
     Indication: HYPERTENSION
     Dosage: 25 MG  Q.D.  PO
     Route: 048
     Dates: start: 20070911, end: 20071108
  4. NIFEDIPINE [Concomitant]
  5. LORAZEPAM [Concomitant]
  6. PROCHLORPERAZINE [Concomitant]
  7. PENICILLIN [Concomitant]
  8. CARAFATE [Concomitant]
  9. LOMOTIL [Concomitant]
  10. CITALOPRAM HYDROBROMIDE [Concomitant]

REACTIONS (10)
  - DEHYDRATION [None]
  - DIARRHOEA [None]
  - GASTROINTESTINAL NECROSIS [None]
  - INFECTION [None]
  - INJURY [None]
  - NAUSEA [None]
  - PALMAR-PLANTAR ERYTHRODYSAESTHESIA SYNDROME [None]
  - PNEUMONIA [None]
  - SMALL INTESTINAL PERFORATION [None]
  - SUICIDAL IDEATION [None]
